FAERS Safety Report 23405957 (Version 1)
Quarter: 2024Q1

REPORT INFORMATION
  Report Type: Spontaneous
  Country: US (occurrence: None)
  Receive Date: 20240114
  Receipt Date: 20240114
  Transmission Date: 20240409
  Serious: Yes (unspecified)
  Sender: FDA-Public Use
  Company Number: None

PATIENT
  Age: 26 Year
  Sex: Female
  Weight: 63 kg

DRUGS (8)
  1. WEGOVY [Suspect]
     Active Substance: SEMAGLUTIDE
     Indication: Weight decreased
     Dates: start: 20230123, end: 20230925
  2. FAMOTIDINE [Concomitant]
     Active Substance: FAMOTIDINE
  3. UNSPECIFIED INGREDIENT [Concomitant]
     Active Substance: UNSPECIFIED INGREDIENT
  4. BUSPIRONE [Concomitant]
     Active Substance: BUSPIRONE HYDROCHLORIDE
  5. MAGNESIUM [Concomitant]
     Active Substance: MAGNESIUM
  6. VITAMIN B12 [Concomitant]
     Active Substance: CYANOCOBALAMIN
  7. MELATONIN [Concomitant]
     Active Substance: MELATONIN
  8. CALCIUM [Concomitant]
     Active Substance: CALCIUM

REACTIONS (8)
  - Gastritis [None]
  - Gastrooesophageal reflux disease [None]
  - Vomiting [None]
  - Decreased appetite [None]
  - Weight decreased [None]
  - Gastrooesophageal sphincter insufficiency [None]
  - Malnutrition [None]
  - Injury [None]

NARRATIVE: CASE EVENT DATE: 20230924
